FAERS Safety Report 17342552 (Version 1)
Quarter: 2020Q1

REPORT INFORMATION
  Report Type: Spontaneous
  Country: US (occurrence: US)
  Receive Date: 20200129
  Receipt Date: 20200129
  Transmission Date: 20200409
  Serious: No
  Sender: FDA-Public Use
  Company Number: US-ALLERGAN-1906290US

PATIENT
  Sex: Female

DRUGS (6)
  1. UNSPECIFIED MUSCLE RELAXERS [Concomitant]
     Indication: BACK DISORDER
  2. ZANTAC [Concomitant]
     Active Substance: RANITIDINE HYDROCHLORIDE
     Indication: GASTROOESOPHAGEAL REFLUX DISEASE
     Dosage: UNK
     Route: 065
  3. UNSPECIFIED MUSCLE RELAXERS [Concomitant]
     Indication: BACK PAIN
     Dosage: UNK
     Route: 065
  4. UNSPECIFIED MUSCLE RELAXERS [Concomitant]
     Indication: MUSCULOSKELETAL DISCOMFORT
  5. BOTOX [Suspect]
     Active Substance: ONABOTULINUMTOXINA
     Indication: MIGRAINE
     Dosage: 155 UNITS, SINGLE
     Route: 030
     Dates: start: 20190112, end: 20190112
  6. RIZATRIPTAN. [Concomitant]
     Active Substance: RIZATRIPTAN
     Indication: MIGRAINE
     Dosage: 10 MG, UNK
     Route: 065

REACTIONS (2)
  - Back pain [Unknown]
  - Headache [Recovering/Resolving]

NARRATIVE: CASE EVENT DATE: 201902
